FAERS Safety Report 6684278-X (Version None)
Quarter: 2010Q2

REPORT INFORMATION
  Report Type: 
  Country: None (occurrence: None)
  Receive Date: 20100416
  Receipt Date: 20100405
  Transmission Date: 20101027
  Serious: Yes (Hospitalization)
  Sender: FDA-Public Use
  Company Number: US-CELGENEUS-163-21880-10040356

PATIENT
  Sex: Female
  Weight: 65.3 kg

DRUGS (1)
  1. REVLIMID [Suspect]
     Indication: GINGIVAL CANCER
     Route: 048

REACTIONS (2)
  - PHARYNGEAL HAEMORRHAGE [None]
  - VASCULAR PSEUDOANEURYSM [None]
